FAERS Safety Report 5880349-6 (Version None)
Quarter: 2008Q3

REPORT INFORMATION
  Report Type: 
  Country: None (occurrence: None)
  Receive Date: 20080912
  Receipt Date: 20080905
  Transmission Date: 20090109
  Serious: Yes (Other)
  Sender: FDA-Public Use
  Company Number: US-PFIZER INC-2008075266

PATIENT
  Sex: Female
  Weight: 68 kg

DRUGS (3)
  1. LYRICA [Suspect]
     Indication: MIGRAINE
     Route: 048
  2. TOPAMAX [Concomitant]
     Indication: MIGRAINE
  3. LEXAPRO [Concomitant]
     Indication: MIGRAINE

REACTIONS (2)
  - BALANCE DISORDER [None]
  - MEMORY IMPAIRMENT [None]
